FAERS Safety Report 23190216 (Version 1)
Quarter: 2023Q4

REPORT INFORMATION
  Report Type: Report from Study
  Country: DE (occurrence: DE)
  Receive Date: 20231116
  Receipt Date: 20231116
  Transmission Date: 20240110
  Serious: Yes (Other)
  Sender: FDA-Public Use
  Company Number: DE-TEVA-2023-DE-2944576

PATIENT
  Sex: Female

DRUGS (2)
  1. OXALIPLATIN [Suspect]
     Active Substance: OXALIPLATIN
     Indication: Colon cancer
     Dosage: CHEMOTHERAPY
     Route: 065
  2. CAPECITABINE [Suspect]
     Active Substance: CAPECITABINE
     Indication: Colon cancer
     Dosage: CHEMOTHERAPY
     Route: 065

REACTIONS (5)
  - Neuropathy peripheral [Unknown]
  - Female sexual dysfunction [Unknown]
  - Sensory disturbance [Unknown]
  - Female reproductive tract disorder [Unknown]
  - Vulval disorder [Unknown]
